FAERS Safety Report 8346438-1 (Version None)
Quarter: 2012Q2

REPORT INFORMATION
  Report Type: 
  Country: None (occurrence: None)
  Receive Date: 20120507
  Receipt Date: 20120507
  Transmission Date: 20120825
  Serious: Yes (Hospitalization)
  Sender: FDA-Public Use
  Company Number: None

PATIENT
  Age: 73 Year
  Sex: Female
  Weight: 62 kg

DRUGS (9)
  1. ASPIRIN [Concomitant]
  2. LISINOPRIL [Concomitant]
  3. AMIODARONE HCL [Suspect]
     Dosage: 200MG PO DAILY
     Route: 048
  4. DIGOXIN [Concomitant]
  5. PRADAXA [Suspect]
     Dosage: 150MG BID
  6. COREG [Concomitant]
  7. FUROSEMIDE [Concomitant]
  8. DOCUSATE [Concomitant]
  9. SIMVASTATIN [Concomitant]

REACTIONS (2)
  - PULMONARY FIBROSIS [None]
  - HAEMOPTYSIS [None]
